FAERS Safety Report 4599923-2 (Version None)
Quarter: 2005Q1

REPORT INFORMATION
  Report Type: 
  Country: None (occurrence: None)
  Receive Date: 20050307
  Receipt Date: 20050228
  Transmission Date: 20050727
  Serious: Yes (Hospitalization)
  Sender: FDA-Public Use
  Company Number: CM-MERCK-0503USA00042

PATIENT
  Age: 46 Year
  Sex: Male
  Weight: 55 kg

DRUGS (1)
  1. STROMECTOL [Suspect]
     Route: 048
     Dates: start: 20050212, end: 20050212

REACTIONS (7)
  - ASTHENIA [None]
  - BACK PAIN [None]
  - CONJUNCTIVAL HAEMORRHAGE [None]
  - DIFFICULTY IN WALKING [None]
  - HEADACHE [None]
  - PAIN [None]
  - VOMITING [None]
